FAERS Safety Report 4601476-7 (Version None)
Quarter: 2005Q1

REPORT INFORMATION
  Report Type: 
  Country: None (occurrence: None)
  Receive Date: 20050308
  Receipt Date: 20050119
  Transmission Date: 20050727
  Serious: Yes (Hospitalization)
  Sender: FDA-Public Use
  Company Number: TW-ROCHE-392701

PATIENT
  Age: 52 Year
  Sex: Male
  Weight: 55.5 kg

DRUGS (5)
  1. PEG-INTERFERON ALFA 2A (RO 25-8310) [Suspect]
     Indication: CHRONIC HEPATITIS
     Dosage: STOPPED MEDICATION BY HIMSELF.
     Route: 058
     Dates: start: 20041108, end: 20050103
  2. PEG-INTERFERON ALFA 2A (RO 25-8310) [Suspect]
     Route: 058
     Dates: start: 20050207
  3. REBETOL [Suspect]
     Indication: CHRONIC HEPATITIS
     Dosage: STOPPED MEDICATION BY HIMSELF.
     Route: 048
     Dates: start: 20041108, end: 20050110
  4. REBETOL [Suspect]
     Route: 048
     Dates: start: 20050131
  5. ESOMEPRAZOLE [Concomitant]
     Dates: start: 20050121, end: 20050131

REACTIONS (3)
  - ARTHROPOD BITE [None]
  - PANCYTOPENIA [None]
  - TREATMENT NONCOMPLIANCE [None]
